FAERS Safety Report 13178377 (Version 6)
Quarter: 2017Q4

REPORT INFORMATION
  Report Type: Report from Study
  Country: CZ (occurrence: CZ)
  Receive Date: 20170202
  Receipt Date: 20171106
  Transmission Date: 20180320
  Serious: Yes (Other)
  Sender: FDA-Public Use
  Company Number: CZ-UCBSA-2017003355

PATIENT
  Age: 39 Year
  Sex: Male
  Weight: 130 kg

DRUGS (5)
  1. CERTOLIZUMAB PEGOL [Suspect]
     Active Substance: CERTOLIZUMAB PEGOL
     Indication: AXIAL SPONDYLOARTHRITIS
     Dosage: 200 MG, EV 2 WEEKS(QOW)
     Route: 058
     Dates: start: 20170112, end: 20170112
  2. MILURIT [Concomitant]
     Active Substance: ALLOPURINOL
     Indication: HYPERURICAEMIA
     Dosage: 100 MG, ONCE DAILY (QD)
     Route: 048
     Dates: start: 20160926
  3. LAGOSA [Concomitant]
     Dosage: 100 MG, ONCE DAILY (QD)
     Route: 048
     Dates: start: 20170303
  4. LAGOSA [Concomitant]
     Indication: PROPHYLAXIS
     Dosage: 100 MG, ONCE DAILY (QD)
     Route: 048
     Dates: start: 20170125, end: 20170302
  5. BIOFENAC [Concomitant]
     Active Substance: ACECLOFENAC
     Indication: SPONDYLITIS
     Dosage: 100 MG, ONCE DAILY (QD)
     Route: 048
     Dates: start: 20161019

REACTIONS (1)
  - Hepatitis E [Recovered/Resolved]

NARRATIVE: CASE EVENT DATE: 20170112
